FAERS Safety Report 8983220 (Version 1)
Quarter: 2012Q4

REPORT INFORMATION
  Report Type: 
  Country: US (occurrence: US)
  Receive Date: 20121212
  Receipt Date: 20121212
  Transmission Date: 20130627
  Serious: Yes (Death)
  Sender: FDA-Public Use
  Company Number: US-ASTELLAS-1141655

PATIENT
  Sex: Male

DRUGS (15)
  1. TARCEVA [Suspect]
     Indication: NON-SMALL CELL LUNG CANCER
     Route: 048
     Dates: start: 20101110, end: 20110607
  2. DECADRON [Concomitant]
     Route: 065
  3. MEGACE [Concomitant]
     Dosage: 1 teaspoonful
     Route: 065
  4. TYLENOL [Concomitant]
  5. CALTRATE WITH VITAMIN D [Concomitant]
     Route: 065
  6. PEPCID [Concomitant]
     Route: 065
  7. ATIVAN [Concomitant]
     Dosage: every 6 hours as needed
     Route: 065
  8. HYCODONE (UNK INGREDIENTS) [Concomitant]
     Dosage: every 4 hrs as needed
     Route: 065
  9. CLEOCIN [Concomitant]
  10. SENOKOT [Concomitant]
     Route: 048
  11. TAXOL [Concomitant]
  12. CARBOPLATIN [Concomitant]
  13. RADIOTHERAPY [Concomitant]
  14. ALIMTA [Concomitant]
  15. TAXOTERE [Concomitant]

REACTIONS (13)
  - Lung cancer metastatic [Fatal]
  - Disease progression [Unknown]
  - Confusional state [Unknown]
  - Asthenia [Unknown]
  - Haemoptysis [Unknown]
  - Cough [Unknown]
  - Dyspnoea exertional [Unknown]
  - Decreased appetite [Unknown]
  - Oedema peripheral [Unknown]
  - Fatigue [Unknown]
  - Rash [Unknown]
  - Weight decreased [Unknown]
  - Constipation [Unknown]
